FAERS Safety Report 24569186 (Version 1)
Quarter: 2024Q4

REPORT INFORMATION
  Report Type: Report from Study
  Country: US (occurrence: US)
  Receive Date: 20241031
  Receipt Date: 20241031
  Transmission Date: 20250115
  Serious: Yes (Other)
  Sender: CSL BEHRING
  Company Number: US-BEH-2024183116

PATIENT
  Age: 59 Year
  Sex: Female
  Weight: 104.5 kg

DRUGS (1)
  1. HIZENTRA [Suspect]
     Active Substance: HUMAN IMMUNOGLOBULIN G
     Dosage: PRODUCT STRENGTH 10
     Route: 065

REACTIONS (1)
  - Groin abscess [Unknown]
